FAERS Safety Report 17172553 (Version 1)
Quarter: 2019Q4

REPORT INFORMATION
  Report Type: Spontaneous
  Country: US (occurrence: US)
  Receive Date: 20191126
  Receipt Date: 20191126
  Transmission Date: 20200122
  Serious: Yes (Hospitalization)
  Sender: FDA-Public Use
  Company Number: None

PATIENT
  Age: 77 Year
  Sex: Male
  Weight: 110.7 kg

DRUGS (2)
  1. CASODEX [Suspect]
     Active Substance: BICALUTAMIDE
     Dates: end: 20190108
  2. LEUPROLIDE ACETATE. [Suspect]
     Active Substance: LEUPROLIDE ACETATE
     Dates: end: 20190724

REACTIONS (5)
  - Oedema peripheral [None]
  - Dyspnoea [None]
  - Orthopnoea [None]
  - Chest discomfort [None]
  - Aortic valve stenosis [None]

NARRATIVE: CASE EVENT DATE: 20191003
